FAERS Safety Report 7813169-3 (Version None)
Quarter: 2011Q4

REPORT INFORMATION
  Report Type: 
  Country: None (occurrence: None)
  Receive Date: 20111013
  Receipt Date: 20111006
  Transmission Date: 20120403
  Serious: Yes (Hospitalization, Disabling)
  Sender: FDA-Public Use
  Company Number: JP-AMGEN-JPNCT2010001682

PATIENT
  Age: 70 Year
  Sex: Male
  Weight: 62 kg

DRUGS (10)
  1. HIRUDOID [Concomitant]
     Route: 062
  2. LENDORMIN DAINIPPO [Concomitant]
     Route: 048
  3. PANITUMUMAB [Suspect]
     Indication: COLORECTAL CANCER
     Dosage: 60 MG/KG, Q2WK
     Route: 041
     Dates: start: 20100922, end: 20101006
  4. PYRIDOXAL [Concomitant]
     Route: 048
  5. PANDEL [Concomitant]
     Route: 062
  6. PROTECADIN [Concomitant]
     Route: 048
  7. ANTIHISTAMINES [Concomitant]
     Indication: PROPHYLAXIS
     Route: 065
  8. CORTICOSTEROIDS [Concomitant]
     Indication: PROPHYLAXIS
     Route: 065
  9. COUGHCODE [Concomitant]
     Route: 048
  10. GOSHAJINKIGAN [Concomitant]
     Route: 048

REACTIONS (2)
  - MUSCULAR WEAKNESS [None]
  - THORACIC VERTEBRAL FRACTURE [None]
